FAERS Safety Report 21604101 (Version 4)
Quarter: 2022Q4

REPORT INFORMATION
  Report Type: Report from Study
  Country: JP (occurrence: JP)
  Receive Date: 20221116
  Receipt Date: 20221123
  Transmission Date: 20230113
  Serious: Yes (Hospitalization, Other)
  Sender: FDA-Public Use
  Company Number: JP-ONO-2022JP030745

PATIENT
  Age: 62 Year
  Sex: Female
  Weight: 83 kg

DRUGS (18)
  1. NIVOLUMAB [Suspect]
     Active Substance: NIVOLUMAB
     Indication: Pancreatic carcinoma
     Dosage: 480 MG, Q4W
     Route: 041
     Dates: start: 20221101, end: 20221101
  2. IRINOTECAN [Suspect]
     Active Substance: IRINOTECAN
     Indication: Pancreatic carcinoma
     Dosage: 273.3 MG
     Route: 041
     Dates: start: 20221101
  3. IRINOTECAN [Suspect]
     Active Substance: IRINOTECAN
  4. FLUOROURACIL [Suspect]
     Active Substance: FLUOROURACIL
     Indication: Pancreatic carcinoma
     Dosage: 4372.8 MG, Q2W
     Route: 041
     Dates: start: 20221101
  5. OXALIPLATIN [Suspect]
     Active Substance: OXALIPLATIN
     Indication: Pancreatic carcinoma
     Dosage: 154.87 MG, Q2W
     Route: 041
     Dates: start: 20221101
  6. LEVOLEUCOVORIN [Suspect]
     Active Substance: LEVOLEUCOVORIN
     Indication: Pancreatic carcinoma
     Dosage: 364.4 MG, Q2W
     Route: 041
     Dates: start: 20221101
  7. MAGROLIMAB [Suspect]
     Active Substance: MAGROLIMAB
     Indication: Pancreatic carcinoma
     Dosage: ADMINISTRATION FOR CYCLE 1 WAS PERFORMED EVERY WEEK, ADMINISTRATION?FOR CYCLE 2 ONWARD WAS PERFORMED
     Route: 041
     Dates: start: 20221101, end: 20221108
  8. ALLOPURINOL [Concomitant]
     Active Substance: ALLOPURINOL
     Indication: Gout
     Dosage: 100 MG, EVERYDAY
     Route: 048
  9. PALONOSETRON [Concomitant]
     Active Substance: PALONOSETRON
     Indication: Prophylaxis of nausea and vomiting
     Dosage: 0.75 MG, AT THE TIME OF MFFX ADMINISTRATION
     Route: 041
     Dates: start: 20221101
  10. AMLODIPINE [Concomitant]
     Active Substance: AMLODIPINE BESYLATE
     Indication: Hypertension
     Dosage: 10 MG, EVERYDAY
     Route: 048
     Dates: start: 20221019
  11. ENALAPRIL [Concomitant]
     Active Substance: ENALAPRIL
     Indication: Hypertension
     Dosage: 5 MG, EVERYDAY
     Route: 048
  12. RAMOSETRON HYDROCHLORIDE [Concomitant]
     Active Substance: RAMOSETRON HYDROCHLORIDE
     Indication: Nausea
     Dosage: 0.1 MG, EVERYDAY
     Route: 048
     Dates: start: 20221103
  13. ZYPREXA [Concomitant]
     Active Substance: OLANZAPINE
     Indication: Nausea
     Dosage: 5 MG, EVERYDAY
     Route: 048
     Dates: start: 20221108
  14. VONOPRAZAN FUMARATE [Concomitant]
     Active Substance: VONOPRAZAN FUMARATE
     Indication: Nausea
     Dosage: 10 MG, EVERYDAY
     Route: 048
     Dates: start: 20221108
  15. CALONAL [Concomitant]
     Active Substance: ACETAMINOPHEN
     Indication: Prophylaxis
     Dosage: 1000 MG, AT THE TIME OF ONO-7913 ADMINISTRATION
     Route: 048
     Dates: start: 20221101
  16. RESTAMIN [DIPHENHYDRAMINE HYDROCHLORIDE] [Concomitant]
     Indication: Prophylaxis of nausea and vomiting
     Dosage: 30 MG, AT THE TIME OF ONO-7913 ADMINISTRATION
     Route: 048
     Dates: start: 20221101
  17. DECADRON (DEXAMETHASONE SODIUM PHOSPHATE) [Concomitant]
     Active Substance: DEXAMETHASONE SODIUM PHOSPHATE
     Indication: Prophylaxis
     Dosage: 6.6 MG, AT THE TIME OF MFFX ADMINISTRATION
     Route: 041
     Dates: start: 20221101
  18. AROKARIS [Concomitant]
     Indication: Prophylaxis of nausea and vomiting
     Dosage: 235 MG, AT THE TIME OF MFFX ADMINISTRATION
     Route: 041
     Dates: start: 20221101

REACTIONS (1)
  - Febrile neutropenia [Recovered/Resolved]

NARRATIVE: CASE EVENT DATE: 20221111
